FAERS Safety Report 15700966 (Version 2)
Quarter: 2019Q1

REPORT INFORMATION
  Report Type: Spontaneous
  Country: DE (occurrence: DE)
  Receive Date: 20181207
  Receipt Date: 20190129
  Transmission Date: 20190417
  Serious: Yes (Life-Threatening, Other)
  Sender: FDA-Public Use
  Company Number: DE-BAYER-2018-223526

PATIENT
  Age: 33 Year
  Sex: Female
  Weight: 69 kg

DRUGS (4)
  1. ULTRAGRAF [Suspect]
     Active Substance: IOPROMIDE
     Indication: BREAST CANCER FEMALE
  2. ULTRAGRAF [Suspect]
     Active Substance: IOPROMIDE
     Indication: BONE PAIN
  3. ULTRAGRAF [Suspect]
     Active Substance: IOPROMIDE
     Indication: CHEST PAIN
  4. ULTRAGRAF [Suspect]
     Active Substance: IOPROMIDE
     Indication: SCAN WITH CONTRAST
     Dosage: 80 ML, UNK

REACTIONS (5)
  - Vomiting [Unknown]
  - Chest pain [Unknown]
  - Dyspnoea [Unknown]
  - Pulse abnormal [Unknown]
  - Syncope [Unknown]
